FAERS Safety Report 10431359 (Version 1)
Quarter: 2014Q3

REPORT INFORMATION
  Report Type: Spontaneous
  Country: US (occurrence: None)
  Receive Date: 20140815
  Receipt Date: 20140815
  Transmission Date: 20150326
  Serious: Yes (Hospitalization)
  Sender: FDA-Public Use
  Company Number: A-US2014-101451

PATIENT
  Age: 76 Year
  Sex: Male

DRUGS (7)
  1. AMIODARONE (AMIODARONE HYDROCHLORIDE) [Concomitant]
  2. ENALAPRIL (ENALAPRIL MALEATE) [Concomitant]
  3. POTASSIUM CHLORIDE (POTASSIUM CHLORIDE) [Concomitant]
     Active Substance: POTASSIUM CHLORIDE
  4. OPSUMIT [Suspect]
     Active Substance: MACITENTAN
     Indication: PRODUCT USED FOR UNKNOWN INDICATION
     Route: 048
  5. LEVOTHYROXINE (LEVOTHYROXINE SODIUM) [Concomitant]
  6. WARFARIN (WARFARIN POTASSIUM) [Concomitant]
  7. FUROSEMIDE (FUROSEMIDE SODIUM) [Concomitant]

REACTIONS (1)
  - Cardiac failure congestive [None]
